FAERS Safety Report 6608309-8 (Version None)
Quarter: 2010Q1

REPORT INFORMATION
  Report Type: 
  Country: None (occurrence: None)
  Receive Date: 20100223
  Receipt Date: 20100217
  Transmission Date: 20100710
  Serious: Yes (Other)
  Sender: FDA-Public Use
  Company Number: TPA2010A00604

PATIENT
  Age: 49 Year
  Sex: Male

DRUGS (1)
  1. KAPIDEX [Suspect]
     Indication: GASTROOESOPHAGEAL REFLUX DISEASE
     Dosage: 60 MG, 1 IN 1 D, PER ORAL
     Route: 048
     Dates: start: 20100129, end: 20100201

REACTIONS (3)
  - DEAFNESS UNILATERAL [None]
  - DRUG INEFFECTIVE [None]
  - TINNITUS [None]
